FAERS Safety Report 23991311 (Version 2)
Quarter: 2024Q2

REPORT INFORMATION
  Report Type: Spontaneous
  Country: US (occurrence: US)
  Receive Date: 20240619
  Receipt Date: 20240628
  Transmission Date: 20240715
  Serious: Yes (Other)
  Sender: FDA-Public Use
  Company Number: US-PFIZER INC-202400195226

PATIENT
  Age: 88 Year
  Sex: Female

DRUGS (1)
  1. IBRANCE [Suspect]
     Active Substance: PALBOCICLIB
     Dosage: DAILY ON DAYS 1 THROUGH 21 OF A 28 DAY
     Route: 048
     Dates: start: 20240516

REACTIONS (13)
  - Glaucoma [Unknown]
  - Constipation [Not Recovered/Not Resolved]
  - Fatigue [Not Recovered/Not Resolved]
  - Dyspnoea [Not Recovered/Not Resolved]
  - Faeces soft [Unknown]
  - Back pain [Unknown]
  - Oedema peripheral [Unknown]
  - Peripheral swelling [Unknown]
  - Bone disorder [Unknown]
  - Vision blurred [Recovering/Resolving]
  - Dry eye [Recovering/Resolving]
  - Therapeutic response unexpected [Recovering/Resolving]
  - Nocturia [Unknown]
